FAERS Safety Report 6894658-5 (Version None)
Quarter: 2010Q3

REPORT INFORMATION
  Report Type: 
  Country: None (occurrence: None)
  Receive Date: 20100802
  Receipt Date: 20100728
  Transmission Date: 20110219
  Serious: Yes (Hospitalization)
  Sender: FDA-Public Use
  Company Number: DE-SANOFI-AVENTIS-2010SA044356

PATIENT
  Age: 71 Year
  Sex: Male
  Weight: 67 kg

DRUGS (8)
  1. DOCETAXEL [Suspect]
     Route: 041
     Dates: start: 20091013, end: 20091013
  2. DOCETAXEL [Suspect]
     Route: 041
     Dates: start: 20091112, end: 20091112
  3. OXALIPLATIN [Suspect]
     Route: 041
     Dates: start: 20091013, end: 20091013
  4. OXALIPLATIN [Suspect]
     Route: 041
     Dates: start: 20091112, end: 20091112
  5. FLUOROURACIL [Suspect]
     Route: 041
     Dates: start: 20091013, end: 20091013
  6. FLUOROURACIL [Suspect]
     Route: 041
     Dates: start: 20091112, end: 20091112
  7. FOLINIC ACID [Suspect]
     Route: 041
     Dates: start: 20091013, end: 20091013
  8. FOLINIC ACID [Suspect]
     Route: 041
     Dates: start: 20091112, end: 20091112

REACTIONS (1)
  - IMPAIRED HEALING [None]
